FAERS Safety Report 9628582 (Version 2)
Quarter: 2013Q4

REPORT INFORMATION
  Report Type: Spontaneous
  Country: JP (occurrence: JP)
  Receive Date: 20131017
  Receipt Date: 20131022
  Transmission Date: 20140711
  Serious: Yes (Hospitalization, Other)
  Sender: FDA-Public Use
  Company Number: JP-009507513-1310JPN006805

PATIENT
  Age: 69 Year
  Sex: Male

DRUGS (3)
  1. AMITRIPTYLINE HYDROCHLORIDE [Suspect]
     Dosage: 100 MG (AT THERAPEUTIC DOSES)
     Route: 048
  2. MIRTAZAPINE [Suspect]
     Dosage: 30 MG (AT THERAPEUTIC DOSES)
     Route: 048
  3. SERTRALINE HYDROCHLORIDE [Suspect]
     Dosage: 50 MG (AT THERAPEUTIC DOSES)
     Route: 048

REACTIONS (1)
  - Status epilepticus [Recovered/Resolved]
